FAERS Safety Report 7732369-4 (Version None)
Quarter: 2011Q3

REPORT INFORMATION
  Report Type: 
  Country: None (occurrence: None)
  Receive Date: 20110906
  Receipt Date: 20110825
  Transmission Date: 20111222
  Serious: Yes (Hospitalization)
  Sender: FDA-Public Use
  Company Number: US-ASTRAZENECA-2011SE51513

PATIENT
  Age: 44 Year
  Sex: Male

DRUGS (4)
  1. ZYRTEC [Concomitant]
  2. TEGRETOL [Concomitant]
  3. TOPROL-XL [Suspect]
     Route: 048
  4. PLAVEX [Concomitant]

REACTIONS (2)
  - CONVULSION [None]
  - MYOCARDIAL INFARCTION [None]
